FAERS Safety Report 20262249 (Version 1)
Quarter: 2021Q4

REPORT INFORMATION
  Report Type: Spontaneous
  Country: CA (occurrence: CA)
  Receive Date: 20211231
  Receipt Date: 20211231
  Transmission Date: 20220303
  Serious: Yes (Other)
  Sender: FDA-Public Use
  Company Number: CA-TOLMAR, INC.-21CA032064

PATIENT
  Sex: Male

DRUGS (3)
  1. ELIGARD [Suspect]
     Active Substance: LEUPROLIDE ACETATE
     Indication: Product used for unknown indication
     Dosage: UNK
     Dates: start: 201911
  2. ELIGARD [Suspect]
     Active Substance: LEUPROLIDE ACETATE
     Dosage: UNK
     Dates: start: 201908
  3. ANDROGEL [Concomitant]
     Active Substance: TESTOSTERONE
     Indication: Blood testosterone abnormal

REACTIONS (4)
  - Chills [Not Recovered/Not Resolved]
  - Asthenia [Not Recovered/Not Resolved]
  - Hot flush [Not Recovered/Not Resolved]
  - Skin disorder [Not Recovered/Not Resolved]

NARRATIVE: CASE EVENT DATE: 20190801
